FAERS Safety Report 9338852 (Version 1)
Quarter: 2013Q2

REPORT INFORMATION
  Report Type: Spontaneous
  Country: AU (occurrence: AU)
  Receive Date: 20130610
  Receipt Date: 20130610
  Transmission Date: 20140414
  Serious: Yes (Death)
  Sender: FDA-Public Use
  Company Number: AU-ELI_LILLY_AND_COMPANY-AU201305009639

PATIENT
  Age: 11 Year
  Sex: Male

DRUGS (2)
  1. STRATTERA [Suspect]
     Indication: ATTENTION DEFICIT/HYPERACTIVITY DISORDER
     Dosage: 10 MG, QD
     Dates: start: 20110128
  2. STRATTERA [Suspect]
     Dosage: 18 MG, QD
     Dates: end: 20111001

REACTIONS (5)
  - Hypothermia [Fatal]
  - Cellulitis [Unknown]
  - Faecal incontinence [Unknown]
  - Sleep disorder [Unknown]
  - Hallucination, auditory [Unknown]
